FAERS Safety Report 15677600 (Version 3)
Quarter: 2018Q4

REPORT INFORMATION
  Report Type: Report from Study
  Country: US (occurrence: US)
  Receive Date: 20181130
  Receipt Date: 20181218
  Transmission Date: 20190205
  Serious: Yes (Disabling, Other)
  Sender: FDA-Public Use
  Company Number: US-ACTELION-A-NJ2018-181199

PATIENT
  Age: 64 Year
  Sex: Female
  Weight: 79.37 kg

DRUGS (4)
  1. VELETRI [Suspect]
     Active Substance: EPOPROSTENOL
     Indication: PULMONARY HYPERTENSION
     Dosage: 22.43 NG/KG, PER MIN
     Route: 042
  2. SILDENAFIL. [Concomitant]
     Active Substance: SILDENAFIL
     Dosage: 20 MG, QD
     Dates: start: 201707
  3. VELETRI [Suspect]
     Active Substance: EPOPROSTENOL
     Dosage: 14.7 NG/KG, PER MIN
     Route: 042
  4. OPSUMIT [Suspect]
     Active Substance: MACITENTAN
     Indication: PULMONARY HYPERTENSION
     Dosage: UNK
     Route: 048
     Dates: start: 20171012, end: 20181110

REACTIONS (8)
  - Platelet count decreased [Recovering/Resolving]
  - Localised oedema [Not Recovered/Not Resolved]
  - Diarrhoea [Unknown]
  - Catheter site discharge [Unknown]
  - Fatigue [Unknown]
  - Limb discomfort [Unknown]
  - Catheter site bruise [Unknown]
  - Oedema peripheral [Not Recovered/Not Resolved]

NARRATIVE: CASE EVENT DATE: 201809
